FAERS Safety Report 8832362 (Version 1)
Quarter: 2012Q4

REPORT INFORMATION
  Report Type: 
  Country: US (occurrence: US)
  Receive Date: 20121009
  Receipt Date: 20121009
  Transmission Date: 20130627
  Serious: No
  Sender: FDA-Public Use
  Company Number: US-ASTRAZENECA-2012SE75816

PATIENT
  Age: 19 Year
  Sex: Male
  Weight: 72.6 kg

DRUGS (3)
  1. SEROQUEL XR [Suspect]
     Indication: ELECTROLYTE IMBALANCE
     Route: 048
  2. SEROQUEL XR [Suspect]
     Indication: DEPRESSION
     Route: 048
  3. SEVERAL CONCOMITANT MEDS [Concomitant]

REACTIONS (4)
  - Activities of daily living impaired [Unknown]
  - Disturbance in attention [Unknown]
  - Drug dose omission [Unknown]
  - Off label use [Unknown]
